FAERS Safety Report 12231371 (Version 2)
Quarter: 2016Q2

REPORT INFORMATION
  Report Type: Report from Study
  Country: DE (occurrence: DE)
  Receive Date: 20160401
  Receipt Date: 20160407
  Transmission Date: 20160815
  Serious: Yes (Hospitalization)
  Sender: FDA-Public Use
  Company Number: PHHO2016DE004657

PATIENT
  Age: 6 Year
  Sex: Male

DRUGS (3)
  1. IBUPROFEN. [Concomitant]
     Active Substance: IBUPROFEN
     Indication: PRODUCT USED FOR UNKNOWN INDICATION
     Dosage: 250-250-250 QD
     Route: 065
  2. OMEPRAZOL [Concomitant]
     Active Substance: OMEPRAZOLE
     Indication: PRODUCT USED FOR UNKNOWN INDICATION
     Dosage: 20-0-0 QD
     Route: 065
  3. ACZ885 [Suspect]
     Active Substance: CANAKINUMAB
     Dosage: UNK
     Route: 058
     Dates: start: 20151007

REACTIONS (1)
  - Enteritis [Recovered/Resolved]

NARRATIVE: CASE EVENT DATE: 20160321
